FAERS Safety Report 5092454-5 (Version None)
Quarter: 2006Q3

REPORT INFORMATION
  Report Type: 
  Country: None (occurrence: None)
  Receive Date: 20060825
  Receipt Date: 20060814
  Transmission Date: 20061208
  Serious: Yes (Other)
  Sender: FDA-Public Use
  Company Number: 2006099201

PATIENT
  Age: 78 Year
  Sex: Male
  Weight: 86.1834 kg

DRUGS (3)
  1. VIAGRA [Suspect]
     Indication: ERECTILE DYSFUNCTION
     Dosage: 50 MG (50 MG, 1 AS NECESSARY),
     Dates: start: 19980101
  2. ATENOLOL [Concomitant]
  3. ENALAPRIL MALEATE [Concomitant]

REACTIONS (2)
  - DRUG EFFECT DECREASED [None]
  - STENT PLACEMENT [None]
